FAERS Safety Report 13152473 (Version 2)
Quarter: 2017Q3

REPORT INFORMATION
  Report Type: Report from Study
  Country: US (occurrence: US)
  Receive Date: 20170125
  Receipt Date: 20170815
  Transmission Date: 20171127
  Serious: Yes (Hospitalization, Other)
  Sender: FDA-Public Use
  Company Number: US-AMGEN-USASL2017011037

PATIENT
  Age: 56 Year
  Sex: Female
  Weight: 54.42 kg

DRUGS (7)
  1. ENBREL [Suspect]
     Active Substance: ETANERCEPT
     Indication: RHEUMATOID ARTHRITIS
     Dosage: UNK UNK, QWK
     Route: 065
     Dates: end: 2015
  2. PLAQUENIL [Concomitant]
     Active Substance: HYDROXYCHLOROQUINE SULFATE
     Indication: RHEUMATOID ARTHRITIS
     Dosage: UNK
     Route: 065
  3. MTX [Concomitant]
     Active Substance: METHOTREXATE SODIUM
     Dosage: UNK
     Route: 065
  4. ENBREL [Suspect]
     Active Substance: ETANERCEPT
     Dosage: UNK UNK, QWK
     Route: 065
     Dates: start: 201611, end: 2016
  5. ENBREL [Suspect]
     Active Substance: ETANERCEPT
     Dosage: UNK UNK, QWK
     Route: 065
     Dates: start: 201701
  6. OXYCODONE [Concomitant]
     Active Substance: OXYCODONE
     Dosage: UNK, AS NECESSARY
     Route: 065
  7. ANASTROZOLE. [Concomitant]
     Active Substance: ANASTROZOLE
     Indication: BREAST CANCER
     Dosage: UNK UNK, QD
     Route: 065

REACTIONS (8)
  - Breast cancer [Unknown]
  - Stress [Unknown]
  - Rheumatoid arthritis [Not Recovered/Not Resolved]
  - Drug dose omission [Unknown]
  - Wrong technique in product usage process [Unknown]
  - Muscle twitching [Unknown]
  - Grip strength decreased [Unknown]
  - Invasive ductal breast carcinoma [Unknown]

NARRATIVE: CASE EVENT DATE: 201510
